FAERS Safety Report 9785363 (Version 2)
Quarter: 2013Q4

REPORT INFORMATION
  Report Type: Spontaneous
  Country: CH (occurrence: CH)
  Receive Date: 20131227
  Receipt Date: 20131227
  Transmission Date: 20140711
  Serious: Yes (Other)
  Sender: FDA-Public Use
  Company Number: CH-BEH-2013039553

PATIENT
  Age: 37 Year
  Sex: Male
  Weight: 69 kg

DRUGS (14)
  1. PRIVIGEN [Suspect]
     Indication: TRANSPLANT REJECTION
     Route: 042
     Dates: start: 20131127, end: 20131129
  2. BACTRIM [Concomitant]
  3. CALCIMAGON D3 [Concomitant]
  4. CARDURA CR [Concomitant]
  5. ESOMEP [Concomitant]
  6. MYFORTIC [Concomitant]
  7. NEBILET [Concomitant]
  8. NOVASC [Concomitant]
  9. PREDNISON GALEPHARM [Concomitant]
     Dosage: 5 MG
  10. PROGRAF [Concomitant]
     Dosage: 1 MG
  11. RESONIUM A [Concomitant]
  12. TOREM [Concomitant]
  13. SOLU MEDROL [Concomitant]
     Route: 042
  14. HEPARIN [Concomitant]
     Dosage: 25000IE/5ML EVERY 12 HOURS 5000 UI S.C

REACTIONS (6)
  - Meningitis aseptic [Unknown]
  - Headache [Recovered/Resolved]
  - Swelling face [Unknown]
  - Vomiting [Unknown]
  - Pyrexia [Unknown]
  - Spinal pain [Unknown]
